FAERS Safety Report 5203157-8 (Version None)
Quarter: 2006Q4

REPORT INFORMATION
  Report Type: 
  Country: None (occurrence: None)
  Receive Date: 20061016
  Receipt Date: 20060320
  Transmission Date: 20070319
  Serious: Yes (Other)
  Sender: FDA-Public Use
  Company Number: 2006027781

PATIENT
  Age: 43 Year
  Sex: Female
  Weight: 87.0906 kg

DRUGS (2)
  1. NEURONTIN [Suspect]
     Indication: NERVE INJURY
     Dosage: 2400 MG(800 MG, 3 IN 1 D)
     Dates: start: 20031008, end: 20040310
  2. ANALGESICS (ANALGESICS) [Concomitant]

REACTIONS (14)
  - AMNESIA [None]
  - COORDINATION ABNORMAL [None]
  - DEPRESSION [None]
  - DIZZINESS [None]
  - EMOTIONAL DISTRESS [None]
  - FATIGUE [None]
  - READING DISORDER [None]
  - STOMACH DISCOMFORT [None]
  - SUICIDAL IDEATION [None]
  - THINKING ABNORMAL [None]
  - TREMOR [None]
  - UNEVALUABLE EVENT [None]
  - VERTIGO [None]
  - VISION BLURRED [None]
